FAERS Safety Report 16188264 (Version 1)
Quarter: 2019Q2

REPORT INFORMATION
  Report Type: Spontaneous
  Country: US (occurrence: US)
  Receive Date: 20190412
  Receipt Date: 20190412
  Transmission Date: 20190711
  Serious: Yes (Other)
  Sender: FDA-Public Use
  Company Number: US-CONCORDIA PHARMACEUTICALS INC.-GSH201904-001053

PATIENT
  Sex: Female

DRUGS (18)
  1. PREDNISONE. [Suspect]
     Active Substance: PREDNISONE
     Indication: CUTANEOUS SARCOIDOSIS
     Dosage: (66% REDUCTION)
     Route: 065
  2. METHOTREXATE. [Suspect]
     Active Substance: METHOTREXATE
     Indication: PULMONARY SARCOIDOSIS
     Route: 065
  3. ADALIMUMAB [Concomitant]
     Active Substance: ADALIMUMAB
     Indication: CUTANEOUS SARCOIDOSIS
  4. HYDROXYCHLOROQUINE [Suspect]
     Active Substance: HYDROXYCHLOROQUINE
     Indication: CUTANEOUS SARCOIDOSIS
  5. MINOCYCLINE HYDROCHLORIDE. [Suspect]
     Active Substance: MINOCYCLINE HYDROCHLORIDE
     Indication: SINUS DISORDER
  6. ADALIMUMAB [Concomitant]
     Active Substance: ADALIMUMAB
     Indication: PULMONARY SARCOIDOSIS
  7. MINOCYCLINE HYDROCHLORIDE. [Suspect]
     Active Substance: MINOCYCLINE HYDROCHLORIDE
     Indication: CUTANEOUS SARCOIDOSIS
     Route: 065
  8. HYDROXYCHLOROQUINE [Suspect]
     Active Substance: HYDROXYCHLOROQUINE
     Indication: SINUS DISORDER
  9. PREDNISONE. [Suspect]
     Active Substance: PREDNISONE
     Indication: SINUS DISORDER
  10. METHOTREXATE. [Suspect]
     Active Substance: METHOTREXATE
     Indication: SINUS DISORDER
  11. MINOCYCLINE HYDROCHLORIDE. [Suspect]
     Active Substance: MINOCYCLINE HYDROCHLORIDE
     Indication: PULMONARY SARCOIDOSIS
  12. ADALIMUMAB [Suspect]
     Active Substance: ADALIMUMAB
     Indication: CUTANEOUS SARCOIDOSIS
     Route: 065
  13. ADALIMUMAB [Suspect]
     Active Substance: ADALIMUMAB
     Indication: SINUS DISORDER
  14. ADALIMUMAB [Concomitant]
     Active Substance: ADALIMUMAB
     Indication: SINUS DISORDER
  15. PREDNISONE. [Suspect]
     Active Substance: PREDNISONE
     Indication: PULMONARY SARCOIDOSIS
     Route: 065
  16. HYDROXYCHLOROQUINE [Suspect]
     Active Substance: HYDROXYCHLOROQUINE
     Indication: PULMONARY SARCOIDOSIS
     Route: 065
  17. METHOTREXATE. [Suspect]
     Active Substance: METHOTREXATE
     Indication: CUTANEOUS SARCOIDOSIS
  18. ADALIMUMAB [Suspect]
     Active Substance: ADALIMUMAB
     Indication: PULMONARY SARCOIDOSIS

REACTIONS (4)
  - Osteopenia [Unknown]
  - Diabetes mellitus [Unknown]
  - Drug ineffective [Unknown]
  - Off label use [Unknown]
